FAERS Safety Report 22111333 (Version 3)
Quarter: 2023Q1

REPORT INFORMATION
  Report Type: Spontaneous
  Country: CN (occurrence: CN)
  Receive Date: 20230317
  Receipt Date: 20230323
  Transmission Date: 20230417
  Serious: Yes (Other)
  Sender: FDA-Public Use
  Company Number: CN-009507513-2303CHN003955

PATIENT
  Age: 42 Year
  Sex: Male
  Weight: 50 kg

DRUGS (4)
  1. CILASTATIN SODIUM\IMIPENEM [Suspect]
     Active Substance: CILASTATIN SODIUM\IMIPENEM
     Indication: Bacterial infection
     Dosage: 0.5 GRAM, Q8H
     Route: 041
     Dates: start: 20230202, end: 20230213
  2. VANCOMYCIN [Suspect]
     Active Substance: VANCOMYCIN
     Indication: Appendiceal abscess
     Dosage: 0.5 GRAM, Q8H
     Route: 041
     Dates: start: 20230131, end: 20230208
  3. VANCOMYCIN [Suspect]
     Active Substance: VANCOMYCIN
     Indication: Peritonitis
  4. VANCOMYCIN [Suspect]
     Active Substance: VANCOMYCIN
     Indication: Bacterial infection

REACTIONS (8)
  - Blood calcium decreased [Recovering/Resolving]
  - Blood phosphorus decreased [Recovering/Resolving]
  - Blood magnesium decreased [Recovering/Resolving]
  - Blood potassium decreased [Recovering/Resolving]
  - Blood sodium decreased [Recovering/Resolving]
  - Diarrhoea [Recovering/Resolving]
  - White blood cells stool positive [Unknown]
  - C-reactive protein increased [Unknown]

NARRATIVE: CASE EVENT DATE: 20230203
